FAERS Safety Report 4598582-2 (Version None)
Quarter: 2005Q1

REPORT INFORMATION
  Report Type: 
  Country: None (occurrence: None)
  Receive Date: 20050304
  Receipt Date: 20050221
  Transmission Date: 20050727
  Serious: Yes (Other)
  Sender: FDA-Public Use
  Company Number: GB-ROCHE-396133

PATIENT
  Age: 69 Year
  Sex: Male
  Weight: 57 kg

DRUGS (7)
  1. TAMIFLU [Suspect]
     Indication: INFLUENZA
     Route: 048
     Dates: start: 20050126, end: 20050131
  2. BECLOMETHASONE [Concomitant]
     Route: 055
  3. FLUOXETINE [Concomitant]
     Route: 065
  4. PARACETAMOL [Concomitant]
  5. VENTOLIN [Concomitant]
     Route: 055
  6. EPILIM [Concomitant]
     Dosage: TAKEN AT NIGHT.
     Route: 065
  7. ZOPICLONE [Concomitant]
     Dosage: TAKEN AT NIGHT.
     Route: 065

REACTIONS (4)
  - BLOOD URINE PRESENT [None]
  - CHROMATURIA [None]
  - PROTEINURIA [None]
  - URINE ODOUR ABNORMAL [None]
